FAERS Safety Report 24361213 (Version 1)
Quarter: 2024Q3

REPORT INFORMATION
  Report Type: Spontaneous
  Country: PL (occurrence: PL)
  Receive Date: 20240925
  Receipt Date: 20240925
  Transmission Date: 20241017
  Serious: Yes (Other)
  Sender: BOEHRINGER INGELHEIM
  Company Number: PL-BoehringerIngelheim-2024-BI-052837

PATIENT
  Age: 84 Year
  Sex: Female

DRUGS (1)
  1. OFEV [Suspect]
     Active Substance: NINTEDANIB
     Indication: Idiopathic pulmonary fibrosis
     Dosage: WITHIN DRUG PROGRAM B.87; 2X 150 MG
     Dates: start: 20220527

REACTIONS (2)
  - Non-small cell lung cancer [Not Recovered/Not Resolved]
  - Dyspnoea exertional [Not Recovered/Not Resolved]
